FAERS Safety Report 11083709 (Version 1)
Quarter: 2015Q2

REPORT INFORMATION
  Report Type: Spontaneous
  Country: JP (occurrence: JP)
  Receive Date: 20150501
  Receipt Date: 20150501
  Transmission Date: 20150821
  Serious: Yes (Death, Other)
  Sender: FDA-Public Use
  Company Number: JP-MYLANLABS-2015M1013209

PATIENT

DRUGS (2)
  1. CARBOPLATIN INJECTION 150 MG ^NK^ [Suspect]
     Active Substance: CARBOPLATIN
     Indication: OVARIAN CANCER STAGE IV
     Dosage: 8 CYCLE
     Route: 041
     Dates: start: 201303
  2. PACLITAXEL. [Suspect]
     Active Substance: PACLITAXEL
     Indication: OVARIAN CANCER STAGE IV
     Dosage: 8 CYCLE
     Route: 041
     Dates: start: 201303

REACTIONS (5)
  - Acute kidney injury [Unknown]
  - Scleroderma renal crisis [Unknown]
  - Respiratory failure [Fatal]
  - Systemic sclerosis [Unknown]
  - Pulmonary fibrosis [Unknown]

NARRATIVE: CASE EVENT DATE: 201312
